FAERS Safety Report 16545654 (Version 1)
Quarter: 2019Q3

REPORT INFORMATION
  Report Type: Spontaneous
  Country: US (occurrence: US)
  Receive Date: 20190528
  Receipt Date: 20190528
  Transmission Date: 20191004
  Serious: No
  Sender: FDA-Public Use
  Company Number: None

PATIENT
  Age: 14 Year
  Sex: Female

DRUGS (1)
  1. FLUOROURACIL. [Suspect]
     Active Substance: FLUOROURACIL
     Indication: HYPERTROPHIC SCAR
     Dosage: ?          OTHER FREQUENCY:UNKNOWN;?
     Route: 026
     Dates: start: 20190528

REACTIONS (1)
  - Off label use [None]

NARRATIVE: CASE EVENT DATE: 20190528
